FAERS Safety Report 5445072-0 (Version None)
Quarter: 2007Q3

REPORT INFORMATION
  Report Type: 
  Country: None (occurrence: None)
  Receive Date: 20070906
  Receipt Date: 20070824
  Transmission Date: 20080115
  Serious: Yes (Life-Threatening)
  Sender: FDA-Public Use
  Company Number: JP-PURDUE-MAG_2007_0000576

PATIENT
  Age: 56 Year
  Sex: Male

DRUGS (14)
  1. OXYCODONE HCL [Suspect]
     Indication: CANCER PAIN
     Dosage: 5 MG, BID
     Route: 048
     Dates: start: 20050602, end: 20050602
  2. OXYCODONE HCL [Suspect]
     Dosage: 10 MG, BID
     Route: 048
     Dates: start: 20050604, end: 20050607
  3. OXYCODONE HCL [Suspect]
     Dosage: 10 MG, PM
     Route: 048
     Dates: start: 20070603, end: 20070603
  4. OXYCODONE HCL [Suspect]
     Dosage: 5 MG, AM
     Route: 048
     Dates: start: 20050603, end: 20050603
  5. NOVAMIN [Suspect]
     Indication: GASTROINTESTINAL DISORDER
     Dosage: 10 MG, DAILY
     Route: 048
     Dates: start: 20050602, end: 20050606
  6. MORPHINE HYDROCHLORIDE [Suspect]
     Indication: CANCER PAIN
     Dosage: 5 MG, DAILY
     Route: 048
     Dates: start: 20050602, end: 20050603
  7. MORPHINE HYDROCHLORIDE [Suspect]
     Dosage: 10 MG, DAILY
     Route: 048
     Dates: start: 20070610
  8. FAMOTIDINE [Concomitant]
     Indication: PROPHYLAXIS AGAINST GASTROINTESTINAL ULCER
     Dosage: 40 MG, DAILY
     Route: 048
     Dates: start: 20050530, end: 20050627
  9. MUCOSAL [Concomitant]
     Indication: LUNG ADENOCARCINOMA
     Dosage: 45 MG, DAILY
     Route: 048
     Dates: start: 20050530, end: 20050628
  10. ASPIRIN [Concomitant]
     Indication: CEREBRAL INFARCTION
     Dosage: 100 MG, DAILY
     Route: 048
     Dates: start: 20050415, end: 20050702
  11. LOXOPROFEN [Concomitant]
     Indication: CANCER PAIN
     Dosage: 180 MG, DAILY
     Route: 048
     Dates: start: 20050602, end: 20050629
  12. LOXOPROFEN [Concomitant]
     Dosage: 120 MG, DAILY
     Route: 048
     Dates: start: 20050530, end: 20050602
  13. PURSENNID [Concomitant]
     Indication: CONSTIPATION PROPHYLAXIS
     Dosage: 12 MG, DAILY
     Route: 048
     Dates: start: 20050602, end: 20050607
  14. MEDICON [Concomitant]
     Indication: LUNG ADENOCARCINOMA
     Dosage: 45 MG, DAILY
     Route: 048
     Dates: start: 20050530, end: 20050622

REACTIONS (3)
  - DYSLALIA [None]
  - LIVER DISORDER [None]
  - RENAL IMPAIRMENT [None]
